FAERS Safety Report 25667982 (Version 1)
Quarter: 2025Q3

REPORT INFORMATION
  Report Type: Report from Study
  Country: EU (occurrence: EU)
  Receive Date: 20250812
  Receipt Date: 20250812
  Transmission Date: 20251020
  Serious: Yes (Other)
  Sender: ABBVIE
  Company Number: EU-JNJFOC-20250738846

PATIENT

DRUGS (1)
  1. IBRUTINIB [Suspect]
     Active Substance: IBRUTINIB
     Indication: Chronic lymphocytic leukaemia
     Route: 048

REACTIONS (18)
  - Neoplasm [Unknown]
  - Nutritional condition abnormal [Unknown]
  - Blood disorder [Unknown]
  - Metabolic disorder [Unknown]
  - Haemorrhage [Unknown]
  - Nervous system disorder [Unknown]
  - Adverse event [Unknown]
  - Gastrointestinal disorder [Unknown]
  - Infestation [Unknown]
  - Cardiac disorder [Unknown]
  - Musculoskeletal disorder [Unknown]
  - Toxicity to various agents [Unknown]
  - Skin disorder [Unknown]
  - Therapy non-responder [Unknown]
  - Angiopathy [Unknown]
  - Infection [Unknown]
  - Hepatobiliary disease [Unknown]
  - Lymphatic disorder [Unknown]
